FAERS Safety Report 8315188-X (Version None)
Quarter: 2012Q2

REPORT INFORMATION
  Report Type: 
  Country: None (occurrence: None)
  Receive Date: 20120426
  Receipt Date: 20120419
  Transmission Date: 20120825
  Serious: Yes (Other)
  Sender: FDA-Public Use
  Company Number: NL-GLAXOSMITHKLINE-B0797437A

PATIENT
  Sex: Female

DRUGS (1)
  1. PAROXETINE [Suspect]
     Indication: DEPRESSED MOOD
     Dosage: 20MG PER DAY
     Route: 048
     Dates: start: 20120117, end: 20120206

REACTIONS (5)
  - RETINAL DETACHMENT [None]
  - RETINAL TEAR [None]
  - VISION BLURRED [None]
  - BLINDNESS [None]
  - RETINOSCHISIS [None]
